FAERS Safety Report 4691303-4 (Version None)
Quarter: 2005Q2

REPORT INFORMATION
  Report Type: 
  Country: None (occurrence: None)
  Receive Date: 20050610
  Receipt Date: 20050604
  Transmission Date: 20051028
  Serious: Yes (Hospitalization)
  Sender: FDA-Public Use
  Company Number: 2005061419

PATIENT
  Age: 69 Year
  Sex: Female
  Weight: 90.7194 kg

DRUGS (9)
  1. BEXTRA [Suspect]
     Indication: ARTHRITIS
     Dosage: 10 MG (10 MG, 1 IN 1 D), ORAL
     Route: 048
     Dates: start: 20040101, end: 20050201
  2. VIOXX [Suspect]
     Indication: ILL-DEFINED DISORDER
  3. MOBIC [Concomitant]
  4. FLUOXETINE [Concomitant]
  5. ALLEGRA [Concomitant]
  6. DARVOCET (DEXTROPROPOXYPHENE NAPSILATE, PARACETAMOL) [Concomitant]
  7. ACIPHEX [Concomitant]
  8. PROZAC [Concomitant]
  9. BENICAR HCT [Concomitant]

REACTIONS (5)
  - HYPERTENSION [None]
  - PAIN [None]
  - PSORIASIS [None]
  - RASH SCALY [None]
  - SCAB [None]
